FAERS Safety Report 7455186-1 (Version None)
Quarter: 2011Q2

REPORT INFORMATION
  Report Type: 
  Country: None (occurrence: None)
  Receive Date: 20110503
  Receipt Date: 20110427
  Transmission Date: 20111010
  Serious: Yes (Life-Threatening, Hospitalization)
  Sender: FDA-Public Use
  Company Number: US-SANOFI-AVENTIS-2010SA027823

PATIENT
  Age: 63 Year
  Sex: Male
  Weight: 104.5 kg

DRUGS (22)
  1. APREPITANT [Suspect]
     Dates: start: 20100422, end: 20100422
  2. APREPITANT [Suspect]
     Dates: start: 20100423, end: 20100423
  3. LOVENOX [Concomitant]
     Indication: DEEP VEIN THROMBOSIS
  4. WARFARIN [Concomitant]
  5. CYMBALTA [Concomitant]
  6. NORMAL SALINE [Concomitant]
     Indication: PROPHYLAXIS
     Route: 042
     Dates: start: 20100401, end: 20100422
  7. DEXAMETHASONE [Concomitant]
     Dates: start: 20100422, end: 20100422
  8. DIPHENHYDRAMINE [Concomitant]
     Dates: start: 20100422, end: 20100422
  9. MULTI-VITAMINS [Concomitant]
  10. ALOXI [Concomitant]
     Indication: PROPHYLAXIS
     Dates: start: 20100401, end: 20100422
  11. CIPROFLOXACIN [Concomitant]
     Dates: start: 20100506
  12. CABAZITAXEL [Suspect]
     Route: 042
     Dates: start: 20100401, end: 20100401
  13. CISPLATIN [Suspect]
     Route: 042
     Dates: start: 20100422, end: 20100422
  14. CELEBREX [Concomitant]
  15. DEXAMETHASONE [Concomitant]
     Indication: PROPHYLAXIS
     Dates: start: 20100401, end: 20100422
  16. DIPHENHYDRAMINE [Concomitant]
     Indication: PROPHYLAXIS
     Dates: start: 20100401, end: 20100422
  17. FLAGYL [Concomitant]
     Dates: start: 20100506
  18. APREPITANT [Suspect]
     Dates: start: 20100424, end: 20100424
  19. FAMOTIDINE [Concomitant]
     Indication: PROPHYLAXIS
     Dates: start: 20100401, end: 20100422
  20. CABAZITAXEL [Suspect]
     Route: 042
     Dates: start: 20100422, end: 20100422
  21. CISPLATIN [Suspect]
     Route: 042
     Dates: start: 20100401, end: 20100401
  22. HYDROCHLOROTHIAZIDE [Concomitant]

REACTIONS (3)
  - DIVERTICULUM INTESTINAL HAEMORRHAGIC [None]
  - DUODENAL ULCER [None]
  - SMALL INTESTINAL HAEMORRHAGE [None]
